FAERS Safety Report 17326644 (Version 1)
Quarter: 2020Q1

REPORT INFORMATION
  Report Type: Spontaneous
  Country: GB (occurrence: GB)
  Receive Date: 20200127
  Receipt Date: 20200127
  Transmission Date: 20200409
  Serious: Yes (Hospitalization, Other)
  Sender: FDA-Public Use
  Company Number: GB-PFIZER INC-2020031933

PATIENT
  Sex: Male

DRUGS (2)
  1. DOCETAXEL. [Suspect]
     Active Substance: DOCETAXEL
     Indication: PROSTATE CANCER
     Dosage: 150 MG, UNK
     Route: 042
     Dates: start: 20140612, end: 20140612
  2. DOCETAXEL. [Suspect]
     Active Substance: DOCETAXEL
     Dosage: UNK
     Route: 042
     Dates: start: 20141002, end: 20141002

REACTIONS (7)
  - Neutropenia [Unknown]
  - Chills [Unknown]
  - Fatigue [Unknown]
  - Alopecia [Unknown]
  - Pyrexia [Unknown]
  - Muscular weakness [Unknown]
  - Neuropathy peripheral [Unknown]

NARRATIVE: CASE EVENT DATE: 20140620
